FAERS Safety Report 23508940 (Version 1)
Quarter: 2024Q1

REPORT INFORMATION
  Report Type: Report from Study
  Country: BR (occurrence: BR)
  Receive Date: 20240209
  Receipt Date: 20240209
  Transmission Date: 20240410
  Serious: Yes (Other)
  Sender: FDA-Public Use
  Company Number: BR-ABBVIE-5627683

PATIENT
  Age: 37 Year
  Sex: Female

DRUGS (7)
  1. BOTOX [Suspect]
     Active Substance: ONABOTULINUMTOXINA
     Indication: Torticollis
     Dosage: TIME INTERVAL: AS NECESSARY: 2 BOTTLES?STRENGTH: 100 INTERNATIONAL UNIT
     Route: 065
     Dates: start: 201710, end: 201710
  2. BOTOX [Suspect]
     Active Substance: ONABOTULINUMTOXINA
     Indication: Torticollis
     Dosage: TIME INTERVAL: AS NECESSARY: 2 BOTTLES?STRENGTH: 100 INTERNATIONAL UNIT
     Route: 065
     Dates: start: 202308, end: 202308
  3. SUMAXPRO [Concomitant]
     Indication: Behcet^s syndrome
  4. PROPRANOLOL HYDROCHLORIDE [Concomitant]
     Active Substance: PROPRANOLOL HYDROCHLORIDE
     Indication: Hypertension
  5. DIPYRONE [Concomitant]
     Active Substance: DIPYRONE
     Indication: Product used for unknown indication
     Dosage: START DATE TEXT: 10 YEARS AGO
  6. Novalgin [Concomitant]
     Indication: Product used for unknown indication
     Dosage: START DATE TEXT: 10 YEARS AGO
  7. CAFFEINE\DIPYRONE\ORPHENADRINE [Concomitant]
     Active Substance: CAFFEINE\DIPYRONE\ORPHENADRINE
     Indication: Product used for unknown indication
     Dosage: START DATE TEXT: 10 YEARS AGO

REACTIONS (12)
  - Surgery [Unknown]
  - Headache [Not Recovered/Not Resolved]
  - Osmophobia [Not Recovered/Not Resolved]
  - Migraine with aura [Not Recovered/Not Resolved]
  - Somnolence [Not Recovered/Not Resolved]
  - Unevaluable event [Unknown]
  - Therapeutic response unexpected [Unknown]
  - Phonophobia [Not Recovered/Not Resolved]
  - Photophobia [Not Recovered/Not Resolved]
  - Nausea [Not Recovered/Not Resolved]
  - Diarrhoea [Not Recovered/Not Resolved]
  - Headache [Recovered/Resolved]

NARRATIVE: CASE EVENT DATE: 20230801
